FAERS Safety Report 12837582 (Version 4)
Quarter: 2017Q1

REPORT INFORMATION
  Report Type: Spontaneous
  Country: GB (occurrence: GB)
  Receive Date: 20161012
  Receipt Date: 20170222
  Transmission Date: 20170428
  Serious: Yes (Death)
  Sender: FDA-Public Use
  Company Number: GB-CONCORDIA PHARMACEUTICALS INC.-E2B_00007861

PATIENT
  Age: 18 Year
  Sex: Female

DRUGS (6)
  1. CICLOSPORIN [Suspect]
     Active Substance: CYCLOSPORINE
     Indication: POLYARTHRITIS
  2. RABBIT HUMAN T LYMPHOCYTE IMMUNOGLOBULIN [Suspect]
     Active Substance: LAPINE T-LYMPHOCYTE IMMUNE GLOBULIN
     Indication: POLYARTHRITIS
  3. FLUDARABINE [Suspect]
     Active Substance: FLUDARABINE PHOSPHATE
     Indication: POLYARTHRITIS
  4. PREDNISOLONE. [Suspect]
     Active Substance: PREDNISOLONE
     Indication: POLYARTHRITIS
  5. CYCLOPHOSPHAMIDE. [Suspect]
     Active Substance: CYCLOPHOSPHAMIDE
     Indication: POLYARTHRITIS
  6. ANAKINRA [Suspect]
     Active Substance: ANAKINRA
     Indication: POLYARTHRITIS

REACTIONS (6)
  - Epstein-Barr virus infection [Fatal]
  - Multiple organ dysfunction syndrome [Fatal]
  - Bacterial sepsis [Fatal]
  - Bone marrow failure [Fatal]
  - Adenovirus infection [Fatal]
  - Aspergillus infection [Fatal]
